FAERS Safety Report 21334673 (Version 1)
Quarter: 2022Q3

REPORT INFORMATION
  Report Type: Report from Study
  Country: CA (occurrence: CA)
  Receive Date: 20220914
  Receipt Date: 20220914
  Transmission Date: 20221027
  Serious: Yes (Other)
  Sender: FDA-Public Use
  Company Number: CA-GILEAD-2022-0597674

PATIENT
  Age: 40 Year
  Sex: Female

DRUGS (4)
  1. SACITUZUMAB GOVITECAN [Suspect]
     Active Substance: SACITUZUMAB GOVITECAN
     Indication: Triple negative breast cancer
     Dosage: 510 MG
     Route: 042
     Dates: start: 20211203, end: 20220818
  2. IBRANCE [Concomitant]
     Active Substance: PALBOCICLIB
  3. AFINITOR [Concomitant]
     Active Substance: EVEROLIMUS
  4. LYNPARZA [Concomitant]
     Active Substance: OLAPARIB

REACTIONS (1)
  - Malignant neoplasm progression [Not Recovered/Not Resolved]
